FAERS Safety Report 21574813 (Version 2)
Quarter: 2022Q4

REPORT INFORMATION
  Report Type: Report from Study
  Country: BR (occurrence: BR)
  Receive Date: 20221110
  Receipt Date: 20221123
  Transmission Date: 20230113
  Serious: Yes (Other)
  Sender: FDA-Public Use
  Company Number: BR-002147023-NVSC2022BR250493

PATIENT
  Age: 81 Year
  Sex: Male
  Weight: 77 kg

DRUGS (3)
  1. ENTRESTO [Suspect]
     Active Substance: SACUBITRIL\VALSARTAN
     Indication: Product used for unknown indication
     Dosage: 100 MG, BID (49/51) (60 TABLETS, USES 2 PER DAY CONTINUOUS USE)
     Route: 065
  2. ENTRESTO [Suspect]
     Active Substance: SACUBITRIL\VALSARTAN
     Dosage: 1 DOSAGE FORM, Q12H
     Route: 048
  3. XARELTO [Concomitant]
     Active Substance: RIVAROXABAN
     Indication: Product used for unknown indication
     Dosage: UNK
     Route: 065

REACTIONS (3)
  - Blindness [Not Recovered/Not Resolved]
  - Haemorrhage [Not Recovered/Not Resolved]
  - Nervousness [Unknown]

NARRATIVE: CASE EVENT DATE: 20220601
